FAERS Safety Report 6187198-2 (Version None)
Quarter: 2009Q2

REPORT INFORMATION
  Report Type: 
  Country: None (occurrence: None)
  Receive Date: 20090507
  Receipt Date: 20090206
  Transmission Date: 20091009
  Serious: Yes (Hospitalization)
  Sender: FDA-Public Use
  Company Number: 613257

PATIENT
  Age: 52 Year
  Sex: Female

DRUGS (4)
  1. NAPROXEN [Suspect]
     Indication: DRUG USE FOR UNKNOWN INDICATION
     Dates: end: 20081201
  2. REBIF [Suspect]
     Indication: MULTIPLE SCLEROSIS
     Dosage: 44 UG 3 PER 1 WEEK SUBCUTANEOUS
     Route: 058
     Dates: start: 20080815
  3. EXCEDRIN (MIGRAINE) [Suspect]
     Indication: DRUG USE FOR UNKNOWN INDICATION
     Dates: end: 20081201
  4. SOLU-MEDROL [Concomitant]

REACTIONS (1)
  - DUODENAL ULCER HAEMORRHAGE [None]
